FAERS Safety Report 10443903 (Version 1)
Quarter: 2014Q3

REPORT INFORMATION
  Report Type: Spontaneous
  Country: US (occurrence: US)
  Receive Date: 20140910
  Receipt Date: 20140910
  Transmission Date: 20150326
  Serious: No
  Sender: FDA-Public Use
  Company Number: US-TARO-2013P1017953

PATIENT
  Sex: Female

DRUGS (2)
  1. WARFARIN SODIUM TABLETS USP 10MG [Suspect]
     Active Substance: WARFARIN SODIUM
     Indication: PULMONARY EMBOLISM
     Route: 048
     Dates: start: 20130704, end: 2013
  2. WARFARIN SODIUM TABLETS USP 10MG [Suspect]
     Active Substance: WARFARIN SODIUM
     Route: 048
     Dates: start: 2013

REACTIONS (1)
  - International normalised ratio decreased [Recovering/Resolving]

NARRATIVE: CASE EVENT DATE: 2013
